FAERS Safety Report 16068306 (Version 1)
Quarter: 2019Q1

REPORT INFORMATION
  Report Type: Spontaneous
  Country: MX (occurrence: MX)
  Receive Date: 20190313
  Receipt Date: 20190313
  Transmission Date: 20190418
  Serious: Yes (Death)
  Sender: FDA-Public Use
  Company Number: MX-UCBSA-2018040615

PATIENT
  Age: 85 Year
  Sex: Female
  Weight: 40 kg

DRUGS (10)
  1. NOOTROPIL [Suspect]
     Active Substance: PIRACETAM
     Indication: OFF LABEL USE
  2. DORZOLAMIDE TIMOLOL [Concomitant]
     Active Substance: DORZOLAMIDE
     Indication: GLAUCOMA
     Dosage: 1 UNK, UNK
     Route: 047
     Dates: start: 2009, end: 20180719
  3. DORZOLAMIDE [Concomitant]
     Active Substance: DORZOLAMIDE
     Indication: GLAUCOMA
     Dosage: UNK
  4. NOOTROPIL [Suspect]
     Active Substance: PIRACETAM
     Indication: CEREBRAL DISORDER
     Dosage: 1 TEASPOON DILLUTED IN WATER / 24 HRS., IN THE MORNING
     Route: 048
     Dates: start: 20180711, end: 201808
  5. TRAVOPROST. [Concomitant]
     Active Substance: TRAVOPROST
     Indication: GLAUCOMA
     Dosage: 1 DROP AT NIGHT; ONCE DAILY (QD)
     Dates: start: 2009, end: 20180719
  6. COMBIVENT [Concomitant]
     Active Substance: ALBUTEROL SULFATE\IPRATROPIUM BROMIDE
     Indication: LUNG CYST
  7. VANNAIR [Concomitant]
     Active Substance: BUDESONIDE\FORMOTEROL FUMARATE DIHYDRATE
     Indication: LUNG CYST
  8. NUBRENZA [Suspect]
     Active Substance: ROTIGOTINE
     Indication: PARKINSON^S DISEASE
     Dosage: 2 MG, ONCE DAILY (QD)
     Route: 062
     Dates: start: 20180711, end: 201807
  9. NUBRENZA [Suspect]
     Active Substance: ROTIGOTINE
     Dosage: 4 MG, ONCE DAILY (QD)
     Route: 062
     Dates: start: 201807, end: 201807
  10. KARET [Concomitant]
     Indication: THYROID DISORDER
     Dosage: UNK

REACTIONS (5)
  - Feeding disorder [Unknown]
  - Muscle rigidity [Unknown]
  - Staring [Unknown]
  - Death [Fatal]
  - Off label use [Unknown]

NARRATIVE: CASE EVENT DATE: 2018
